FAERS Safety Report 21022670 (Version 1)
Quarter: 2022Q2

REPORT INFORMATION
  Report Type: Spontaneous
  Country: US (occurrence: US)
  Receive Date: 20220629
  Receipt Date: 20220629
  Transmission Date: 20220720
  Serious: No
  Sender: FDA-Public Use
  Company Number: US-SUN PHARMACEUTICAL INDUSTRIES LTD-2021R1-316314

PATIENT
  Sex: Male

DRUGS (3)
  1. MEMANTINE [Suspect]
     Active Substance: MEMANTINE
     Indication: Dementia
     Dosage: 6 PM AFTER EATING
     Route: 065
  2. DONEPEZIL [Suspect]
     Active Substance: DONEPEZIL
     Indication: Dementia
     Dosage: UNK
     Route: 065
  3. AMLODIPINE [Concomitant]
     Active Substance: AMLODIPINE BESYLATE
     Indication: Cardiac disorder
     Dosage: UNK
     Route: 065

REACTIONS (1)
  - Abnormal dreams [Not Recovered/Not Resolved]
